FAERS Safety Report 6894140-5 (Version None)
Quarter: 2010Q3

REPORT INFORMATION
  Report Type: 
  Country: None (occurrence: None)
  Receive Date: 20100708
  Receipt Date: 20091208
  Transmission Date: 20110219
  Serious: Yes (Other)
  Sender: FDA-Public Use
  Company Number: 2009295078

PATIENT
  Age: 59 Year
  Sex: Male
  Weight: 81.6 kg

DRUGS (7)
  1. CHANTIX [Suspect]
     Indication: SMOKING CESSATION THERAPY
     Dosage: 0.5 MG, 1X/DAY, ORAL
     Route: 048
     Dates: start: 20091108, end: 20091110
  2. CHANTIX [Suspect]
     Indication: SUICIDAL IDEATION
     Dosage: 0.5 MG, 1X/DAY, ORAL
     Route: 048
     Dates: start: 20091108, end: 20091110
  3. METOPROLOL SUCCINARTE (METOPROLOL SUCCINATE) [Concomitant]
  4. LISINOPRIL [Concomitant]
  5. LOVASTATIN [Concomitant]
  6. ASPIRIN [Concomitant]
  7. ESTRADIOL [Concomitant]

REACTIONS (13)
  - ABNORMAL DREAMS [None]
  - ANGER [None]
  - ANXIETY [None]
  - DECREASED APPETITE [None]
  - DISSOCIATION [None]
  - DISTURBANCE IN ATTENTION [None]
  - DYSGEUSIA [None]
  - FEELING ABNORMAL [None]
  - HEART RATE IRREGULAR [None]
  - INSOMNIA [None]
  - IRRITABILITY [None]
  - MEMORY IMPAIRMENT [None]
  - SUICIDAL IDEATION [None]
